FAERS Safety Report 11752817 (Version 1)
Quarter: 2015Q4

REPORT INFORMATION
  Report Type: Report from Study
  Country: US (occurrence: US)
  Receive Date: 20151119
  Receipt Date: 20151119
  Transmission Date: 20160304
  Serious: Yes (Death, Hospitalization)
  Sender: FDA-Public Use
  Company Number: US-ROCHE-1508535

PATIENT
  Age: 54 Year
  Sex: Female
  Weight: 42.7 kg

DRUGS (3)
  1. BEVACIZUMAB [Suspect]
     Active Substance: BEVACIZUMAB
     Dosage: MOST RECENT DOSE BEFORE ABDOMINAL PAIN ON 01/DEC/2014
     Route: 042
     Dates: start: 20141201
  2. IXABEPILONE [Suspect]
     Active Substance: IXABEPILONE
     Indication: RENAL CELL CARCINOMA
     Dosage: 6 MG/M2/DAY IV OVER 1 HR ON DAYS 1-5?CYCLE = 21 DAYS:?TOTAL DOSE ADMINISTREDIN THE COURSE: 41.7 MG
     Route: 042
     Dates: start: 20140407
  3. BEVACIZUMAB [Suspect]
     Active Substance: BEVACIZUMAB
     Indication: RENAL CELL CARCINOMA
     Dosage: OVER 30-90 MIN ON DAY 1?CYCLE = 21 DAYS:?TOTAL DOSE ADMINISTERED IN THE COURSE 599 MG?LAST DOSE ADMI
     Route: 042
     Dates: start: 20130410

REACTIONS (8)
  - Upper gastrointestinal haemorrhage [Fatal]
  - Anaemia [Fatal]
  - Decreased appetite [Recovering/Resolving]
  - Abdominal pain [Recovering/Resolving]
  - Cerebrovascular accident [Fatal]
  - Malaise [Recovering/Resolving]
  - Gastrointestinal disorder [Fatal]
  - White blood cell count decreased [Recovering/Resolving]

NARRATIVE: CASE EVENT DATE: 20141024
